FAERS Safety Report 25958630 (Version 1)
Quarter: 2025Q4

REPORT INFORMATION
  Report Type: Report from Study
  Country: US (occurrence: US)
  Receive Date: 20251024
  Receipt Date: 20251024
  Transmission Date: 20260118
  Serious: Yes (Other)
  Sender: APELLIS PHARMACEUTICALS
  Company Number: US-APELLIS-2025-APL-0002017

PATIENT

DRUGS (4)
  1. PEGCETACOPLAN [Suspect]
     Active Substance: PEGCETACOPLAN
     Indication: C3 glomerulopathy
     Dosage: INFUSE 15 ML SUBCUTANEOUSLY TWICE WEEKLY
     Route: 058
     Dates: start: 20251016
  2. PEGCETACOPLAN [Suspect]
     Active Substance: PEGCETACOPLAN
     Indication: Nephritic syndrome
  3. PEGCETACOPLAN [Suspect]
     Active Substance: PEGCETACOPLAN
     Indication: Glomerulonephritis membranoproliferative
  4. PEGCETACOPLAN [Suspect]
     Active Substance: PEGCETACOPLAN
     Indication: Immune-complex membranoproliferative glomerulonephritis

REACTIONS (4)
  - Dyspnoea [Recovered/Resolved]
  - Nausea [Recovered/Resolved]
  - Headache [Recovered/Resolved]
  - Lethargy [Recovered/Resolved]
